FAERS Safety Report 7262003-1 (Version None)
Quarter: 2011Q1

REPORT INFORMATION
  Report Type: 
  Country: None (occurrence: None)
  Receive Date: 20110130
  Receipt Date: 20101104
  Transmission Date: 20110831
  Serious: No
  Sender: FDA-Public Use
  Company Number: US-ABBOTT-10P-163-0683347-00

PATIENT
  Age: 17 Year
  Sex: Female

DRUGS (5)
  1. NAPROXEN [Concomitant]
     Indication: BEHCET'S SYNDROME
     Route: 048
  2. PRILOSEC [Concomitant]
     Indication: BEHCET'S SYNDROME
     Route: 048
  3. PREDNISONE [Concomitant]
     Indication: BEHCET'S SYNDROME
     Dosage: UP TO 20MG A DAY, AS NEEDED
     Route: 048
  4. HUMIRA [Suspect]
     Indication: BEHCET'S SYNDROME
     Dates: start: 20101103
  5. CELCEPT [Concomitant]
     Indication: BEHCET'S SYNDROME
     Route: 048

REACTIONS (2)
  - INJECTION SITE ERYTHEMA [None]
  - INJECTION SITE PAIN [None]
